FAERS Safety Report 9887813 (Version 1)
Quarter: 2013Q4

REPORT INFORMATION
  Report Type: Spontaneous
  Country: US (occurrence: None)
  Receive Date: 20131223
  Receipt Date: 20131223
  Transmission Date: 20140711
  Serious: No
  Sender: FDA-Public Use
  Company Number: 220793LEO

PATIENT
  Age: 80 Year
  Sex: 0

DRUGS (1)
  1. PICATO (0.015%) [Suspect]
     Indication: ACTINIC KERATOSIS
     Dosage: 1 IN 1 D
     Dates: start: 20130227, end: 20130301

REACTIONS (10)
  - Throat irritation [None]
  - Application site erythema [None]
  - Application site exfoliation [None]
  - Application site pruritus [None]
  - Headache [None]
  - Nasopharyngitis [None]
  - Sneezing [None]
  - Insomnia [None]
  - Cough [None]
  - Rhinorrhoea [None]
